FAERS Safety Report 9083906 (Version 1)
Quarter: 2013Q1

REPORT INFORMATION
  Report Type: Spontaneous
  Country: BR (occurrence: BR)
  Receive Date: 20130131
  Receipt Date: 20130131
  Transmission Date: 20140127
  Serious: Yes (Other)
  Sender: FDA-Public Use
  Company Number: BR-ASTRAZENECA-2013SE04970

PATIENT
  Sex: Male

DRUGS (1)
  1. ATACAND HCT [Suspect]
     Dosage: 16 + 12.5 MG
     Route: 048
     Dates: end: 20120101

REACTIONS (2)
  - Hypertension [Recovered/Resolved]
  - Swelling [Unknown]
